FAERS Safety Report 9418303 (Version 1)
Quarter: 2013Q3

REPORT INFORMATION
  Report Type: Spontaneous
  Country: US (occurrence: US)
  Receive Date: 20130725
  Receipt Date: 20130725
  Transmission Date: 20140515
  Serious: No
  Sender: FDA-Public Use
  Company Number: US-009507513-1307USA013118

PATIENT
  Age: 39 Year
  Sex: Female
  Weight: 112.2 kg

DRUGS (2)
  1. IMPLANON [Suspect]
     Indication: CONTRACEPTION
     Dosage: UNK
     Route: 059
     Dates: start: 201112
  2. IMPLANON [Suspect]
     Indication: MENSTRUAL CYCLE MANAGEMENT

REACTIONS (3)
  - Hypomenorrhoea [Recovered/Resolved]
  - Menorrhagia [Recovering/Resolving]
  - Dysmenorrhoea [Recovering/Resolving]
